FAERS Safety Report 8152028-6 (Version None)
Quarter: 2012Q1

REPORT INFORMATION
  Report Type: 
  Country: None (occurrence: None)
  Receive Date: 20120215
  Receipt Date: 20120215
  Transmission Date: 20120608
  Serious: No
  Sender: FDA-Public Use
  Company Number: None

PATIENT
  Age: 54 Year
  Sex: Male
  Weight: 78.6 kg

DRUGS (1)
  1. METFORMIN HCL [Suspect]
     Dosage: 1000 MG BID PO
     Route: 048
     Dates: end: 20120214

REACTIONS (2)
  - NAUSEA [None]
  - VOMITING [None]
